FAERS Safety Report 5611363-3 (Version None)
Quarter: 2008Q1

REPORT INFORMATION
  Report Type: 
  Country: None (occurrence: None)
  Receive Date: 20080201
  Receipt Date: 20080122
  Transmission Date: 20080703
  Serious: Yes (Hospitalization, Other)
  Sender: FDA-Public Use
  Company Number: JP-PFIZER INC-2007108121

PATIENT
  Sex: Male
  Weight: 41 kg

DRUGS (13)
  1. VFEND [Suspect]
     Indication: ASPERGILLOMA
     Route: 042
  2. VFEND [Suspect]
     Route: 042
     Dates: start: 20071128, end: 20071203
  3. VFEND [Suspect]
     Dosage: DAILY DOSE:150MG
     Route: 042
     Dates: start: 20071226, end: 20071226
  4. VFEND [Suspect]
     Route: 042
     Dates: start: 20071227, end: 20080104
  5. VFEND [Suspect]
     Dosage: DAILY DOSE:150MG
     Route: 042
     Dates: start: 20080109, end: 20080109
  6. VFEND [Suspect]
     Route: 042
     Dates: start: 20080110, end: 20080118
  7. VFEND [Suspect]
     Indication: ASPERGILLOMA
     Route: 048
     Dates: start: 20071204, end: 20071219
  8. TAMSULOSIN HCL [Concomitant]
     Route: 048
  9. HUSCODE [Concomitant]
     Route: 048
  10. MUCODYNE [Concomitant]
     Route: 048
  11. SELBEX [Concomitant]
     Route: 048
  12. SYMMETREL [Concomitant]
     Route: 048
  13. ARICEPT [Concomitant]
     Route: 048

REACTIONS (5)
  - ABNORMAL BEHAVIOUR [None]
  - ANOREXIA [None]
  - HYPOGLYCAEMIA [None]
  - ORTHOSTATIC HYPOTENSION [None]
  - PHOTOPHOBIA [None]
